FAERS Safety Report 6824666-1 (Version None)
Quarter: 2010Q3

REPORT INFORMATION
  Report Type: 
  Country: None (occurrence: None)
  Receive Date: 20100708
  Receipt Date: 20061108
  Transmission Date: 20110219
  Serious: No
  Sender: FDA-Public Use
  Company Number: US-PFIZER INC-2006140596

PATIENT
  Sex: Female
  Weight: 56.7 kg

DRUGS (2)
  1. CHANTIX [Suspect]
     Indication: SMOKING CESSATION THERAPY
     Route: 048
     Dates: start: 20061001, end: 20061107
  2. ANTIHYPERTENSIVES [Concomitant]
     Route: 048

REACTIONS (2)
  - FATIGUE [None]
  - SOMNOLENCE [None]
